FAERS Safety Report 6546849-0 (Version None)
Quarter: 2010Q1

REPORT INFORMATION
  Report Type: 
  Country: None (occurrence: None)
  Receive Date: 20100122
  Receipt Date: 20100115
  Transmission Date: 20100710
  Serious: Yes (Life-Threatening, Hospitalization)
  Sender: FDA-Public Use
  Company Number: -SANOFI-AVENTIS-2010SA003398

PATIENT
  Sex: Female

DRUGS (2)
  1. LEFLUNOMIDE [Suspect]
     Indication: RHEUMATOID ARTHRITIS
     Route: 048
     Dates: start: 20091201, end: 20091203
  2. LEFLUNOMIDE [Suspect]
     Route: 048
     Dates: start: 20091204, end: 20091208

REACTIONS (2)
  - HEPATIC FAILURE [None]
  - STEVENS-JOHNSON SYNDROME [None]
